FAERS Safety Report 8445233 (Version 2)
Quarter: 2013Q2

REPORT INFORMATION
  Report Type: Spontaneous
  Country: US (occurrence: None)
  Receive Date: 20120104
  Receipt Date: 20120508
  Transmission Date: 20140414
  Serious: Yes (Other)
  Sender: FDA-Public Use
  Company Number: 2011HGS-002913

PATIENT
  Age: 54 Year
  Sex: Female
  Weight: 83.92 kg

DRUGS (29)
  1. BENLYSTA [Suspect]
     Indication: SYSTEMIC LUPUS ERYTHEMATOSUS
     Dosage: 10 MG/KG, 1 IN 28 D, INTRAVENOUS DRIP
     Route: 041
     Dates: start: 20111114
  2. CELLCEPT(MYCOPHENOLATE MOFETIL)(MYCOPHENOLATE MOFETIL) [Concomitant]
  3. PLAQUENIL(HYDROXYCHLOROQUINE SULFATE)(HYDROXYCHLOROQUINE SULFATE) [Concomitant]
  4. PREDNISONE [Concomitant]
  5. ACYCLOVIR(ACICLOVIR)(ACICLOVIR) [Concomitant]
  6. PERCOCET(OXYCOCET)(PARACETAMOL, OXYCODONE HYDROCHLORIDE) [Concomitant]
  7. SINGULAIR [Concomitant]
  8. VICODIN(VICODIN)(PARACETAMOL, HYDROCODONE BITARTRATE) [Concomitant]
  9. LABETALOL (LABETALOL) (LABETALOL) [Concomitant]
  10. NORVASC [Concomitant]
  11. LEXAPRO(ESCITALOPRAM OXALATE)(ESCITALOPRAM OXALATE) [Concomitant]
  12. CELEBREX [Concomitant]
  13. CLONAZEPAM [Concomitant]
  14. PREMARIN(ESTROGENS CONJUGATED)(ESTROGENS CONJUGATED) [Concomitant]
  15. SEROQUEL(QUETIAPINE FUMARATE) (QUETIAPINE FUMARATE) [Concomitant]
  16. BENADRYL(DIPHENHYDRAMINE HYDROCHLORIDE)(DIPHENHYDRAMINE HYDROCHLORIDE) [Concomitant]
  17. FLEXERIL(CYCLOBENZAPRINE HYDROCHLORIDE) (CYCLOBENZAPRINE HYDROCHLORIDE) [Concomitant]
  18. VITAMIN B12(CYANOCOBALAMIN)(CYANOCOBALAMIN) [Concomitant]
  19. NEURONTIN(GABAPENTIN)(GABAPENTIN) [Concomitant]
  20. NASONEX(MOMETASONE FUROATE)(MOMETASONE FUROATE) [Concomitant]
  21. ALLEGRA(FEXOFENADINE HYDROCHLORIDE)(FEXOFENADINE HYDROCHLORIDE) [Concomitant]
  22. HYDROXYZINE(HYDROXYZINE)(HYDROXYZINE) [Concomitant]
  23. VITAMIN D(ERGOCALCIFEROL)(ERGOCALCIFEROL) [Concomitant]
  24. MAGNESIUM OXIDE(MAGNESIUM OXIDE)(MAGNESIUM OXIDE [Concomitant]
  25. VITAMIN E(TOCOPHEROL)(TOCOPHEROL) [Concomitant]
  26. LOVAZA [Concomitant]
  27. CHOLESTYRAMINE(COLESTYRAMINE)(COLESTYRAMINE) [Concomitant]
  28. ARANESP [Concomitant]
  29. DEXILANT (DEXLANSOPRAZOLE) [Concomitant]

REACTIONS (3)
  - WEIGHT INCREASED [None]
  - FATIGUE [None]
  - OEDEMA PERIPHERAL [None]
